FAERS Safety Report 9196342 (Version 1)
Quarter: 2013Q1

REPORT INFORMATION
  Report Type: Spontaneous
  Country: BR (occurrence: BR)
  Receive Date: 20130328
  Receipt Date: 20130328
  Transmission Date: 20140127
  Serious: Yes (Other)
  Sender: FDA-Public Use
  Company Number: BR-AMGEN-BRASP2013020431

PATIENT
  Age: 33 Year
  Sex: Male
  Weight: 65 kg

DRUGS (2)
  1. ENBREL [Suspect]
     Indication: RHEUMATOID ARTHRITIS
     Dosage: 50 MG, ONCE WEEKLY
     Route: 058
     Dates: start: 201208, end: 201212
  2. PREDNISONE [Concomitant]
     Dosage: UNK

REACTIONS (4)
  - Immunodeficiency [Unknown]
  - Pneumonia [Unknown]
  - Urinary tract infection [Unknown]
  - Respiratory tract infection [Unknown]
